FAERS Safety Report 8521919-6 (Version None)
Quarter: 2012Q3

REPORT INFORMATION
  Report Type: 
  Country: None (occurrence: None)
  Receive Date: 20120719
  Receipt Date: 20120529
  Transmission Date: 20120928
  Serious: No
  Sender: FDA-Public Use
  Company Number: US-BRISTOL-MYERS SQUIBB COMPANY-16640997

PATIENT
  Age: 46 Year
  Sex: Female

DRUGS (1)
  1. YERVOY [Suspect]
     Dosage: THERAPY DT:26JAN2012, 16FEB2012, 08MAR2012 AND 29MAR2012
     Dates: start: 20120126

REACTIONS (6)
  - OEDEMA PERIPHERAL [None]
  - NEUROLOGICAL SYMPTOM [None]
  - HYPERHIDROSIS [None]
  - TREMOR [None]
  - VISUAL IMPAIRMENT [None]
  - HEADACHE [None]
